FAERS Safety Report 4736272-3 (Version None)
Quarter: 2005Q3

REPORT INFORMATION
  Report Type: 
  Country: None (occurrence: None)
  Receive Date: 20050804
  Receipt Date: 20050715
  Transmission Date: 20060218
  Serious: Yes (Hospitalization)
  Sender: FDA-Public Use
  Company Number: 2005BI013701

PATIENT
  Age: 44 Year
  Sex: Female

DRUGS (2)
  1. AVONEX [Suspect]
     Indication: MULTIPLE SCLEROSIS
     Dosage: 30 UG; QW; IM
     Route: 030
     Dates: start: 20030912
  2. AVONEX [Suspect]
     Indication: MULTIPLE SCLEROSIS
     Dosage: 30 UG; QW; IM
     Route: 030

REACTIONS (10)
  - ANAEMIA [None]
  - BACTERAEMIA [None]
  - BACTERIAL INFECTION [None]
  - CYSTITIS [None]
  - LIVER DISORDER [None]
  - LUNG DISORDER [None]
  - NAUSEA [None]
  - URINARY TRACT INFECTION [None]
  - VERTIGO [None]
  - WEIGHT DECREASED [None]
